FAERS Safety Report 8564141-X (Version None)
Quarter: 2012Q3

REPORT INFORMATION
  Report Type: 
  Country: None (occurrence: None)
  Receive Date: 20120723
  Receipt Date: 20120709
  Transmission Date: 20120928
  Serious: Yes (Other)
  Sender: FDA-Public Use
  Company Number: 2012P1047416

PATIENT
  Age: 30 Year
  Sex: Female

DRUGS (1)
  1. OVIDE [Suspect]
     Indication: ACCIDENTAL EXPOSURE
     Dates: start: 20120626

REACTIONS (3)
  - ACCIDENTAL EXPOSURE [None]
  - FALL [None]
  - LOSS OF CONSCIOUSNESS [None]
